FAERS Safety Report 4762535-1 (Version None)
Quarter: 2005Q3

REPORT INFORMATION
  Report Type: 
  Country: None (occurrence: None)
  Receive Date: 20050902
  Receipt Date: 20050506
  Transmission Date: 20060218
  Serious: Yes (Other)
  Sender: FDA-Public Use
  Company Number: 2005S1002280

PATIENT
  Age: 66 Year
  Sex: Male
  Weight: 89.8122 kg

DRUGS (6)
  1. FENTANYL [Suspect]
     Indication: ABDOMINAL PAIN
     Dosage: SEE IMAGE
     Dates: start: 20050401
  2. SIMVASTATIN [Concomitant]
  3. PAROXETINE HYDROCHLORIDE [Concomitant]
  4. MIRTAZAPINE [Concomitant]
  5. RISPERIDONE [Concomitant]
  6. HYDROMORPHONE HYDROCHLORIDE [Concomitant]

REACTIONS (3)
  - DRUG INEFFECTIVE [None]
  - HALLUCINATION [None]
  - SEDATION [None]
